FAERS Safety Report 12648754 (Version 7)
Quarter: 2019Q2

REPORT INFORMATION
  Report Type: Spontaneous
  Country: US (occurrence: US)
  Receive Date: 20160812
  Receipt Date: 20190508
  Transmission Date: 20190711
  Serious: Yes (Other)
  Sender: FDA-Public Use
  Company Number: US-PFIZER INC-2016378742

PATIENT
  Age: 48 Year
  Sex: Female
  Weight: 127 kg

DRUGS (7)
  1. LYRICA [Suspect]
     Active Substance: PREGABALIN
     Indication: INTERVERTEBRAL DISC DISORDER
  2. LYRICA [Suspect]
     Active Substance: PREGABALIN
     Indication: RADICULOPATHY
  3. LYRICA [Suspect]
     Active Substance: PREGABALIN
     Indication: NEUROPATHY PERIPHERAL
     Dosage: 150 MG, 3X/DAY
     Route: 048
  4. LYRICA [Suspect]
     Active Substance: PREGABALIN
     Indication: COMPLICATION ASSOCIATED WITH DEVICE
  5. LYRICA [Suspect]
     Active Substance: PREGABALIN
     Indication: CERVICOBRACHIAL SYNDROME
     Dosage: 200 MG, 3X/DAY
     Route: 048
  6. LYRICA [Suspect]
     Active Substance: PREGABALIN
     Indication: SPINAL OPERATION
  7. LYRICA [Suspect]
     Active Substance: PREGABALIN
     Indication: LUMBAR RADICULOPATHY

REACTIONS (8)
  - Memory impairment [Not Recovered/Not Resolved]
  - Feeling abnormal [Unknown]
  - Hypoaesthesia [Unknown]
  - Spinal cord compression [Unknown]
  - Exostosis [Unknown]
  - Migraine [Unknown]
  - Intentional product use issue [Unknown]
  - Pain [Not Recovered/Not Resolved]
